FAERS Safety Report 23893394 (Version 1)
Quarter: 2024Q2

REPORT INFORMATION
  Report Type: Spontaneous
  Country: CA (occurrence: CA)
  Receive Date: 20240524
  Receipt Date: 20240524
  Transmission Date: 20240716
  Serious: Yes (Other)
  Sender: FDA-Public Use
  Company Number: CA-PFIZER INC-202400090992

PATIENT

DRUGS (3)
  1. INFLECTRA [Suspect]
     Active Substance: INFLIXIMAB-DYYB
     Indication: Colitis ulcerative
     Dosage: 700 MG, W0, 2, 6 AND Q8 WEEKS ,W0 WAS IN HOSPITAL AND W2 WAS DELAYED DUE TO ANTIBIOTICS
     Route: 042
     Dates: start: 20240328
  2. INFLECTRA [Suspect]
     Active Substance: INFLIXIMAB-DYYB
     Dosage: 700 MG, W0, 2, 6 AND Q8 WEEKS ,W0 WAS IN HOSPITAL AND W2 WAS DELAYED DUE TO ANTIBIOTICS
     Route: 042
     Dates: start: 20240418
  3. INFLECTRA [Suspect]
     Active Substance: INFLIXIMAB-DYYB
     Dosage: 700 MG, W0, 2, 6 AND Q8 WEEKS, (700MG, EVERY 8 WEEKS (W6))
     Route: 042
     Dates: start: 20240515

REACTIONS (2)
  - Thrombosis [Recovering/Resolving]
  - Product dispensing error [Unknown]
